FAERS Safety Report 8806023 (Version 1)
Quarter: 2012Q4

REPORT INFORMATION
  Report Type: Spontaneous
  Country: US (occurrence: None)
  Receive Date: 20120917
  Receipt Date: 20120917
  Transmission Date: 20130627
  Serious: Yes (Life-Threatening, Hospitalization, Disabling)
  Sender: FDA-Public Use
  Company Number: 2012HGS-003914

PATIENT
  Age: 91 Year
  Sex: Female

DRUGS (3)
  1. BENLYSTA [Suspect]
     Indication: SYSTEMIC LUPUS ERYTHEMATOSUS
     Route: 041
     Dates: start: 201107
  2. ASA [Concomitant]
  3. PLAQUENIL [Concomitant]

REACTIONS (3)
  - Cardiac failure congestive [None]
  - Atrial fibrillation [None]
  - Thrombocytopenia [None]
